FAERS Safety Report 22317441 (Version 1)
Quarter: 2023Q2

REPORT INFORMATION
  Report Type: Spontaneous
  Country: US (occurrence: US)
  Receive Date: 20230515
  Receipt Date: 20230515
  Transmission Date: 20230722
  Serious: No
  Sender: FDA-Public Use
  Company Number: US-JNJFOC-20230464464

PATIENT
  Age: 57 Year
  Sex: Male

DRUGS (3)
  1. ZYRTEC [Suspect]
     Active Substance: CETIRIZINE HYDROCHLORIDE
     Indication: Product used for unknown indication
     Route: 065
  2. KRYSTEXXA [Suspect]
     Active Substance: PEGLOTICASE
     Indication: Product used for unknown indication
     Dosage: FIRST INFUSION
     Route: 042
     Dates: start: 20230302
  3. KRYSTEXXA [Suspect]
     Active Substance: PEGLOTICASE
     Route: 042
     Dates: start: 20230417

REACTIONS (2)
  - Erythema [Recovered/Resolved]
  - Gout [Recovered/Resolved]

NARRATIVE: CASE EVENT DATE: 20230302
